FAERS Safety Report 4655285-3 (Version None)
Quarter: 2005Q2

REPORT INFORMATION
  Report Type: 
  Country: None (occurrence: None)
  Receive Date: 20050401
  Receipt Date: 20041221
  Transmission Date: 20051028
  Serious: No
  Sender: FDA-Public Use
  Company Number: 200421212BWH

PATIENT
  Age: 78 Year
  Sex: Female
  Weight: 49.8957 kg

DRUGS (7)
  1. CIPRO XR [Suspect]
     Indication: COUGH
     Dosage: 1000 MG, QD, ORAL
     Route: 048
     Dates: start: 20041208, end: 20041209
  2. CIPRO XR [Suspect]
     Indication: NASOPHARYNGITIS
     Dosage: 1000 MG, QD, ORAL
     Route: 048
     Dates: start: 20041208, end: 20041209
  3. PLAVIX [Suspect]
  4. ASPIRIN [Suspect]
     Dosage: 325 MG, TOTAL DAILY,
  5. PRAVACHOL [Concomitant]
  6. THYROID TAB [Concomitant]
  7. TIAZAC [Concomitant]

REACTIONS (5)
  - HYPERSENSITIVITY [None]
  - INCREASED TENDENCY TO BRUISE [None]
  - PRURITUS [None]
  - PRURITUS GENERALISED [None]
  - SWELLING FACE [None]
